FAERS Safety Report 8475132 (Version 9)
Quarter: 2015Q2

REPORT INFORMATION
  Report Type: Report from Study
  Country: CA (occurrence: CA)
  Receive Date: 20120323
  Receipt Date: 20150413
  Transmission Date: 20150821
  Serious: Yes (Other)
  Sender: FDA-Public Use
  Company Number: PHHY2012CA014306

PATIENT
  Age: 74 Year
  Sex: Male

DRUGS (2)
  1. SANDOSTATIN LAR DEPOT [Suspect]
     Active Substance: OCTREOTIDE ACETATE
     Dosage: UNK
     Route: 030
  2. SANDOSTATIN LAR DEPOT [Suspect]
     Active Substance: OCTREOTIDE ACETATE
     Indication: ACROMEGALY
     Dosage: 20 MG, EVERY 4 WEEKS
     Route: 030
     Dates: start: 20051104

REACTIONS (15)
  - Back pain [Unknown]
  - Neck pain [Unknown]
  - Product quality issue [Unknown]
  - Malaise [Unknown]
  - Wrong technique in drug usage process [Unknown]
  - Photosensitivity reaction [Unknown]
  - Pneumonia [Unknown]
  - Blood pressure systolic increased [Unknown]
  - Needle issue [Unknown]
  - Pruritus [Unknown]
  - Eczema [Unknown]
  - Pyrexia [Unknown]
  - Rash generalised [Unknown]
  - Underdose [Unknown]
  - Weight decreased [Unknown]

NARRATIVE: CASE EVENT DATE: 20150202
